FAERS Safety Report 21626490 (Version 1)
Quarter: 2022Q4

REPORT INFORMATION
  Report Type: Spontaneous
  Country: US (occurrence: None)
  Receive Date: 20221122
  Receipt Date: 20221122
  Transmission Date: 20230113
  Serious: No
  Sender: FDA-Public Use
  Company Number: US-ROCHE-3112566

PATIENT
  Age: 56 Year
  Sex: Female

DRUGS (1)
  1. LUCENTIS [Suspect]
     Active Substance: RANIBIZUMAB
     Indication: Neovascular age-related macular degeneration
     Dosage: VARIES, AS NEEDED. AND ONGOING
     Route: 050
     Dates: start: 201702

REACTIONS (5)
  - Eye oedema [Unknown]
  - Eye disorder [Unknown]
  - Eye haemorrhage [Unknown]
  - Off label use [Unknown]
  - Visual impairment [Unknown]

NARRATIVE: CASE EVENT DATE: 20210601
